FAERS Safety Report 14616990 (Version 10)
Quarter: 2020Q2

REPORT INFORMATION
  Report Type: Spontaneous
  Country: US (occurrence: US)
  Receive Date: 20180309
  Receipt Date: 20200406
  Transmission Date: 20200713
  Serious: Yes (Hospitalization, Other)
  Sender: FDA-Public Use
  Company Number: US-BRISTOL-MYERS SQUIBB COMPANY-BMS-2018-022040

PATIENT
  Sex: Female
  Weight: 80.74 kg

DRUGS (1)
  1. ORENCIA [Suspect]
     Active Substance: ABATACEPT
     Indication: RHEUMATOID ARTHRITIS
     Dosage: 125 MG, QWK
     Route: 058
     Dates: start: 201701

REACTIONS (10)
  - Vomiting [Unknown]
  - Malaise [Unknown]
  - Mental disorder [Unknown]
  - Influenza [Unknown]
  - Upper respiratory tract infection [Unknown]
  - Blood potassium decreased [Unknown]
  - Oesophageal candidiasis [Unknown]
  - Ulcer [Unknown]
  - Nausea [Unknown]
  - Gastroenteritis viral [Unknown]
